FAERS Safety Report 19105153 (Version 3)
Quarter: 2021Q4

REPORT INFORMATION
  Report Type: Report from Study
  Country: US (occurrence: None)
  Receive Date: 20210408
  Receipt Date: 20211215
  Transmission Date: 20220303
  Serious: Yes (Hospitalization)
  Sender: FDA-Public Use
  Company Number: US-ROCHE-2802794

PATIENT
  Age: 67 Year
  Sex: Male
  Weight: 89.2 kg

DRUGS (5)
  1. OBINUTUZUMAB [Suspect]
     Active Substance: OBINUTUZUMAB
     Indication: Chronic lymphocytic leukaemia
     Dosage: 100 MG IV ON DAY 1, CYCLE 1?900 MG IV ON DAY 2, CYCLE 1?1000 MG IV ON DAY 8, CYCLE 1?1000 MG IV ON D
     Route: 042
     Dates: start: 20200817
  2. VENETOCLAX [Suspect]
     Active Substance: VENETOCLAX
     Indication: Chronic lymphocytic leukaemia
     Dosage: 20 MG PO QD DAYS 1-7 CYCLE 3?50 MG PO QD DAYS 8-14, CYCLE 3?100 MG PO QD DAYS 15-21, CYCLE 3?200 MG
     Route: 048
     Dates: start: 20200817
  3. VENETOCLAX [Suspect]
     Active Substance: VENETOCLAX
     Dosage: TOTAL DOSE ADMINISTERED THIS COURSE (DOSE): 3200 MG, LAST ADMINISTERED DATE: 16-FEB-2021, STUDY DRUG
     Route: 048
     Dates: start: 20210308, end: 20210310
  4. IBRUTINIB [Suspect]
     Active Substance: IBRUTINIB
     Indication: Chronic lymphocytic leukaemia
     Dosage: 420 MG PO QD ON DAYS 1-28, CYCLES 1-19 ON 16/FEB/2021, ADMINISTERED THE MOST RECENT DOSE OF IBRUTINI
     Route: 048
     Dates: start: 20200817
  5. IBRUTINIB [Suspect]
     Active Substance: IBRUTINIB
     Dosage: TOTAL DOSE ADMINISTERED THIS COURSE (DOSE): 3360 MG, LAST ADMINISTERED DATE: 16-FEB-2021, STUDY DRUG
     Route: 048
     Dates: start: 20210308, end: 20210310

REACTIONS (3)
  - Pneumonia [Recovered/Resolved]
  - Pneumonitis [Not Recovered/Not Resolved]
  - Pyrexia [Not Recovered/Not Resolved]

NARRATIVE: CASE EVENT DATE: 20210215
